FAERS Safety Report 17164951 (Version 1)
Quarter: 2019Q4

REPORT INFORMATION
  Report Type: Spontaneous
  Country: DE (occurrence: DE)
  Receive Date: 20191217
  Receipt Date: 20191217
  Transmission Date: 20200122
  Serious: Yes (Hospitalization)
  Sender: FDA-Public Use
  Company Number: DE-PFIZER INC-2019538818

PATIENT
  Age: 55 Year
  Sex: Female

DRUGS (2)
  1. UNACID PD [Suspect]
     Active Substance: SULTAMICILLIN TOSYLATE
     Dosage: 1 DF, 2X/DAY
     Dates: start: 20191206
  2. UNACID [AMPICILLIN SODIUM;SULBACTAM SODIUM] [Suspect]
     Active Substance: AMPICILLIN SODIUM\SULBACTAM SODIUM
     Dosage: UNK, 3X/DAY
     Route: 042
     Dates: start: 20191204

REACTIONS (2)
  - Diarrhoea [Not Recovered/Not Resolved]
  - Body temperature increased [Not Recovered/Not Resolved]

NARRATIVE: CASE EVENT DATE: 20191204
